FAERS Safety Report 5727726-1 (Version None)
Quarter: 2008Q2

REPORT INFORMATION
  Report Type: 
  Country: None (occurrence: None)
  Receive Date: 20080430
  Receipt Date: 20080415
  Transmission Date: 20081010
  Serious: Yes (Other)
  Sender: FDA-Public Use
  Company Number: 8028662

PATIENT
  Weight: 1.4 kg

DRUGS (3)
  1. KEPPRA [Suspect]
     Dosage: 500 MG 2/D TRP
     Route: 064
     Dates: start: 20070215
  2. PHENERGAN [Concomitant]
  3. ZOFRAN [Concomitant]

REACTIONS (5)
  - CAESAREAN SECTION [None]
  - MATERNAL DRUGS AFFECTING FOETUS [None]
  - PREMATURE BABY [None]
  - SMALL FOR DATES BABY [None]
  - UMBILICAL HERNIA [None]
